FAERS Safety Report 13560440 (Version 9)
Quarter: 2019Q1

REPORT INFORMATION
  Report Type: Report from Study
  Country: TN (occurrence: TN)
  Receive Date: 20170518
  Receipt Date: 20190322
  Transmission Date: 20190417
  Serious: Yes (Hospitalization, Other)
  Sender: FDA-Public Use
  Company Number: PHHY2017TN072409

PATIENT
  Age: 59 Year
  Sex: Female

DRUGS (3)
  1. SOLUPRED [Concomitant]
     Indication: PRODUCT USED FOR UNKNOWN INDICATION
     Dosage: 0.5 MG/KG, QD
     Route: 065
  2. TASIGNA [Suspect]
     Active Substance: NILOTINIB
     Dosage: UNK
     Route: 048
     Dates: start: 20171209
  3. TASIGNA [Suspect]
     Active Substance: NILOTINIB
     Indication: CHRONIC MYELOID LEUKAEMIA
     Dosage: 400 MG, BID
     Route: 048
     Dates: start: 201609, end: 20171206

REACTIONS (16)
  - Back pain [Unknown]
  - Diabetes mellitus [Unknown]
  - Blindness [Unknown]
  - Intervertebral disc protrusion [Unknown]
  - Concomitant disease aggravated [Not Recovered/Not Resolved]
  - Eye burns [Unknown]
  - Arterial occlusive disease [Unknown]
  - Rash erythematous [Recovering/Resolving]
  - Hypersensitivity [Unknown]
  - Cataract [Not Recovered/Not Resolved]
  - Eye pruritus [Unknown]
  - Pruritus [Recovered/Resolved]
  - Pain in extremity [Not Recovered/Not Resolved]
  - Cytogenetic analysis abnormal [Unknown]
  - Spinal cord compression [Unknown]
  - Onychomycosis [Not Recovered/Not Resolved]

NARRATIVE: CASE EVENT DATE: 2016
